FAERS Safety Report 8158706-7 (Version None)
Quarter: 2012Q1

REPORT INFORMATION
  Report Type: 
  Country: None (occurrence: None)
  Receive Date: 20120217
  Receipt Date: 20120202
  Transmission Date: 20120608
  Serious: Yes (Hospitalization, Other)
  Sender: FDA-Public Use
  Company Number: USA/USA/12/0023020

PATIENT
  Age: 25 Year
  Sex: Female

DRUGS (10)
  1. RISPERIDONE [Suspect]
     Indication: ACUTE PSYCHOSIS
     Dosage: 2 MG, 1 D,
  2. AMOXICILLIN [Suspect]
     Indication: STREPTOCOCCAL BACTERAEMIA
  3. AMPICILLIN [Suspect]
     Indication: STREPTOCOCCAL BACTERAEMIA
  4. LORAZEPAM [Suspect]
     Indication: ACUTE PSYCHOSIS
  5. PRENATAL VITAMINS (PRENATAL VITAMINS /01549301/) [Concomitant]
  6. FERROUS SULFATE TAB [Concomitant]
  7. OLANZAPINE [Suspect]
     Indication: ACUTE PSYCHOSIS
     Dosage: 5 MG, 1 D,
  8. HALOPERIDOL [Suspect]
     Indication: ACUTE PSYCHOSIS
     Dosage: 2.5 MG, 1 D,
  9. CEFTRIAXONE [Suspect]
     Indication: STREPTOCOCCAL BACTERAEMIA
     Dosage: INTRAVENOUS
     Route: 042
  10. FOLIC ACID [Concomitant]

REACTIONS (14)
  - DELUSION [None]
  - THINKING ABNORMAL [None]
  - ALANINE AMINOTRANSFERASE INCREASED [None]
  - CULTURE URINE POSITIVE [None]
  - MENINGITIS [None]
  - PSYCHOTIC DISORDER [None]
  - AGITATION [None]
  - ESCHERICHIA INFECTION [None]
  - BACTERIURIA [None]
  - STREPTOCOCCUS TEST POSITIVE [None]
  - ASPARTATE AMINOTRANSFERASE INCREASED [None]
  - NEUROLEPTIC MALIGNANT SYNDROME [None]
  - SUICIDAL IDEATION [None]
  - UROSEPSIS [None]
